FAERS Safety Report 16128323 (Version 7)
Quarter: 2019Q3

REPORT INFORMATION
  Report Type: Report from Study
  Country: AU (occurrence: AU)
  Receive Date: 20190328
  Receipt Date: 20190926
  Transmission Date: 20191004
  Serious: Yes (Death, Life-Threatening, Hospitalization)
  Sender: FDA-Public Use
  Company Number: AU-CELGENEUS-AUS-20190307012

PATIENT
  Age: 77 Year
  Sex: Female
  Weight: 63.7 kg

DRUGS (33)
  1. AMBISOME [Concomitant]
     Active Substance: AMPHOTERICIN B
     Indication: PROPHYLAXIS
     Dosage: 18 MILLIGRAM
     Route: 041
     Dates: start: 20190323, end: 20190325
  2. ONDANSETRON [Concomitant]
     Active Substance: ONDANSETRON
     Indication: NAUSEA
     Route: 065
     Dates: start: 20190304, end: 20190322
  3. TRANEXAMIC ACID. [Concomitant]
     Active Substance: TRANEXAMIC ACID
     Dosage: 1 GRAM
     Route: 048
     Dates: start: 20190326, end: 20190327
  4. PANTOPRAZOLE [Concomitant]
     Active Substance: PANTOPRAZOLE
     Indication: PRODUCT USED FOR UNKNOWN INDICATION
     Dosage: 40 MILLIGRAM
     Route: 041
     Dates: start: 20190325, end: 20190327
  5. OMEPRAZOLE. [Suspect]
     Active Substance: OMEPRAZOLE
     Indication: ACUTE MYELOID LEUKAEMIA
     Route: 048
     Dates: start: 20190226, end: 20190226
  6. OMEPRAZOLE. [Suspect]
     Active Substance: OMEPRAZOLE
     Indication: GASTROOESOPHAGEAL REFLUX DISEASE
     Route: 048
     Dates: start: 201806, end: 20190323
  7. MAGNESIUM [Concomitant]
     Active Substance: MAGNESIUM
     Indication: ROUTINE HEALTH MAINTENANCE
     Dosage: 2 DOSAGE FORMS
     Route: 048
     Dates: end: 201903
  8. PARACETAMOL [Concomitant]
     Active Substance: ACETAMINOPHEN
     Indication: BACK PAIN
     Route: 048
     Dates: start: 20190227, end: 20190227
  9. PROMETHAZINE [Concomitant]
     Active Substance: PROMETHAZINE HYDROCHLORIDE
     Indication: PROPHYLAXIS
     Route: 041
     Dates: start: 20190227, end: 20190313
  10. CHLORVESCENT [Concomitant]
     Active Substance: POTASSIUM CHLORIDE
     Indication: HYPOKALAEMIA
     Route: 048
     Dates: start: 20190322, end: 20190322
  11. CHLORVESCENT [Concomitant]
     Active Substance: POTASSIUM CHLORIDE
     Dosage: 4 DOSAGE FORMS
     Route: 048
     Dates: start: 20190323, end: 20190323
  12. CAFFEINE. [Suspect]
     Active Substance: CAFFEINE
     Indication: ACUTE MYELOID LEUKAEMIA
     Route: 048
     Dates: start: 20190226, end: 20190226
  13. ONDANSETRON [Concomitant]
     Active Substance: ONDANSETRON
     Dosage: 4-8MG
     Route: 041
     Dates: start: 20190324, end: 20190325
  14. TRANEXAMIC ACID. [Concomitant]
     Active Substance: TRANEXAMIC ACID
     Indication: HAEMORRHAGE PROPHYLAXIS
     Dosage: 3 GRAM
     Route: 048
     Dates: start: 20190322, end: 20190325
  15. FRUSEMIDE [Concomitant]
     Active Substance: FUROSEMIDE
     Indication: PROPHYLAXIS
     Dosage: 40 MILLIGRAM
     Route: 041
     Dates: start: 20190324, end: 20190324
  16. FRUSEMIDE [Concomitant]
     Active Substance: FUROSEMIDE
     Dosage: 20 MILLIGRAM
     Route: 041
     Dates: start: 20190325, end: 20190326
  17. FRUSEMIDE [Concomitant]
     Active Substance: FUROSEMIDE
     Route: 041
     Dates: start: 20190323, end: 20190323
  18. FENTANYL. [Concomitant]
     Active Substance: FENTANYL
     Route: 065
     Dates: start: 20190327, end: 20190328
  19. MIDAZOLAM [Suspect]
     Active Substance: MIDAZOLAM HYDROCHLORIDE
     Indication: ACUTE MYELOID LEUKAEMIA
     Route: 041
     Dates: start: 20190226, end: 20190226
  20. FLURBIPROFEN. [Suspect]
     Active Substance: FLURBIPROFEN
     Indication: ACUTE MYELOID LEUKAEMIA
     Route: 048
     Dates: start: 20190226, end: 20190226
  21. THYROXINE [Concomitant]
     Active Substance: LEVOTHYROXINE
     Indication: HYPOTHYROIDISM
     Dosage: 100 MICROGRAM
     Route: 048
     Dates: start: 1989
  22. THYROXINE [Concomitant]
     Active Substance: LEVOTHYROXINE
     Dosage: 200 MICROGRAM
     Route: 048
     Dates: start: 1989
  23. FENTANYL. [Concomitant]
     Active Substance: FENTANYL
     Indication: SUPPORTIVE CARE
     Dosage: 25-50MG
     Route: 058
     Dates: start: 20190327, end: 20190327
  24. COLOXYL/SENNA [Concomitant]
     Indication: CONSTIPATION
     Dosage: 4 DOSAGE FORMS
     Route: 048
     Dates: start: 20190326, end: 20190327
  25. DEXTROMETHORPHAN [Suspect]
     Active Substance: DEXTROMETHORPHAN
     Indication: ACUTE MYELOID LEUKAEMIA
     Route: 048
     Dates: start: 20190226, end: 20190226
  26. PARACETAMOL [Concomitant]
     Active Substance: ACETAMINOPHEN
     Indication: DIFFERENTIATION SYNDROME
     Route: 048
     Dates: start: 20190320, end: 20190320
  27. ALLOPURINOL. [Concomitant]
     Active Substance: ALLOPURINOL
     Indication: PROPHYLAXIS
     Dosage: 300 MILLIGRAM
     Route: 048
     Dates: start: 20190321, end: 20190324
  28. CC-90007 [Suspect]
     Active Substance: ENASIDENIB MESYLATE
     Indication: ACUTE MYELOID LEUKAEMIA
     Dosage: 100 MILLIGRAM
     Route: 048
     Dates: start: 20190227, end: 20190324
  29. MIDAZOLAM [Suspect]
     Active Substance: MIDAZOLAM HYDROCHLORIDE
     Indication: SUPPORTIVE CARE
     Dosage: 2.5-5MG
     Route: 058
     Dates: start: 20190327, end: 20190328
  30. EVENING PRIMROSE OIL [Concomitant]
     Active Substance: EVENING PRIMROSE OIL\HERBALS
     Indication: ROUTINE HEALTH MAINTENANCE
     Dosage: 2 DOSAGE FORMS
     Route: 048
     Dates: start: 2000, end: 201903
  31. AMBISOME [Concomitant]
     Active Substance: AMPHOTERICIN B
     Indication: FUNGAL INFECTION
     Dosage: 100 MILLIGRAM
     Route: 041
     Dates: start: 20190227, end: 20190313
  32. PARACETAMOL [Concomitant]
     Active Substance: ACETAMINOPHEN
     Route: 048
     Dates: start: 20190321, end: 20190322
  33. HYDROCORTISONE. [Concomitant]
     Active Substance: HYDROCORTISONE
     Indication: PROPHYLAXIS
     Route: 041
     Dates: start: 20190221, end: 20190313

REACTIONS (1)
  - Differentiation syndrome [Fatal]

NARRATIVE: CASE EVENT DATE: 20190315
